FAERS Safety Report 4430643-0 (Version None)
Quarter: 2004Q3

REPORT INFORMATION
  Report Type: 
  Country: None (occurrence: None)
  Receive Date: 20040819
  Receipt Date: 20040819
  Transmission Date: 20050211
  Serious: No
  Sender: FDA-Public Use
  Company Number: None

PATIENT
  Age: 82 Year
  Sex: Female

DRUGS (8)
  1. WARFARIN SODIUM [Suspect]
     Indication: ATRIAL FIBRILLATION
     Dosage: 5 MG QD
  2. LASIX [Concomitant]
  3. K-DUR 10 [Concomitant]
  4. IMDUR [Concomitant]
  5. COZAAR [Concomitant]
  6. ATENOLOL [Concomitant]
  7. PRILOSEC [Concomitant]
  8. PRAVACHOL [Concomitant]

REACTIONS (2)
  - FEELING ABNORMAL [None]
  - PHARMACEUTICAL PRODUCT COMPLAINT [None]
